FAERS Safety Report 12725327 (Version 3)
Quarter: 2016Q4

REPORT INFORMATION
  Report Type: Spontaneous
  Country: JP (occurrence: JP)
  Receive Date: 20160908
  Receipt Date: 20161101
  Transmission Date: 20170207
  Serious: Yes (Hospitalization)
  Sender: FDA-Public Use
  Company Number: JP-ELI_LILLY_AND_COMPANY-JP201609002088

PATIENT
  Age: 75 Year
  Sex: Male

DRUGS (12)
  1. NEXIUM [Concomitant]
     Active Substance: ESOMEPRAZOLE MAGNESIUM
     Indication: PRODUCT USED FOR UNKNOWN INDICATION
     Dosage: 20 MG, UNKNOWN
     Route: 048
  2. ERBITUX [Suspect]
     Active Substance: CETUXIMAB
     Dosage: 480 MG, UNKNOWN
     Route: 042
     Dates: end: 20160817
  3. WARFARIN [Concomitant]
     Active Substance: WARFARIN
     Dosage: 5.5 MG, QD
     Route: 048
  4. ERBITUX [Suspect]
     Active Substance: CETUXIMAB
     Indication: OROPHARYNGEAL CANCER RECURRENT
     Dosage: 680 MG, UNKNOWN
     Route: 042
     Dates: start: 20160803, end: 20160803
  5. RANDA [Concomitant]
     Active Substance: CISPLATIN
     Indication: OROPHARYNGEAL CANCER
     Dosage: 70 MG/M2, OTHER
     Route: 065
     Dates: start: 20160803, end: 20160803
  6. GLACTIV [Concomitant]
     Active Substance: SITAGLIPTIN
     Indication: DIABETES MELLITUS
     Dosage: 50 MG, QD
     Route: 048
     Dates: start: 20160808, end: 20160825
  7. NEXIUM [Concomitant]
     Active Substance: ESOMEPRAZOLE MAGNESIUM
     Dosage: 20 MG, QD
     Route: 048
  8. WARFARIN [Concomitant]
     Active Substance: WARFARIN
     Indication: PRODUCT USED FOR UNKNOWN INDICATION
     Dosage: 5 MG, UNKNOWN
     Route: 048
     Dates: end: 20160830
  9. RANDA [Concomitant]
     Active Substance: CISPLATIN
     Indication: OROPHARYNGEAL CANCER RECURRENT
  10. 5-FU                               /00098801/ [Concomitant]
     Active Substance: FLUOROURACIL
     Indication: OROPHARYNGEAL CANCER RECURRENT
     Dosage: 1700 MG, UNKNOWN
     Route: 065
     Dates: start: 20160803, end: 20160806
  11. 5-FU                               /00098801/ [Concomitant]
     Active Substance: FLUOROURACIL
     Dosage: 1000 MG/M2, OTHER
     Route: 065
     Dates: start: 20160803, end: 20160806
  12. BIOFERMIN                          /01617201/ [Concomitant]
     Active Substance: BACILLUS SUBTILIS\LACTOBACILLUS ACIDOPHILUS\STREPTOCOCCUS FAECAIS
     Indication: DIARRHOEA
     Dosage: 1 DF, TID
     Route: 048
     Dates: start: 20160809, end: 20160823

REACTIONS (3)
  - Stomatitis [Unknown]
  - Pancreatitis acute [Recovered/Resolved]
  - Palmar-plantar erythrodysaesthesia syndrome [Unknown]

NARRATIVE: CASE EVENT DATE: 20160810
